FAERS Safety Report 12093867 (Version 1)
Quarter: 2016Q1

REPORT INFORMATION
  Report Type: Spontaneous
  Country: AU (occurrence: AU)
  Receive Date: 20160219
  Receipt Date: 20160219
  Transmission Date: 20160526
  Serious: Yes (Life-Threatening)
  Sender: FDA-Public Use
  Company Number: AU-PFIZER INC-2015433880

PATIENT
  Age: 44 Year
  Sex: Female
  Weight: 60 kg

DRUGS (2)
  1. MOBIC [Concomitant]
     Active Substance: MELOXICAM
     Indication: PAIN
     Dosage: 7.5 MG, UNK
     Route: 048
  2. LYRICA [Suspect]
     Active Substance: PREGABALIN
     Indication: NEURALGIA
     Dosage: 25 MG, AT NIGHT
     Route: 048
     Dates: start: 20151114

REACTIONS (4)
  - Depressed level of consciousness [Recovered/Resolved]
  - Road traffic accident [Unknown]
  - Somnolence [Recovered/Resolved]
  - Impaired driving ability [Recovered/Resolved]

NARRATIVE: CASE EVENT DATE: 20151115
